FAERS Safety Report 8154785-1 (Version None)
Quarter: 2012Q1

REPORT INFORMATION
  Report Type: 
  Country: None (occurrence: None)
  Receive Date: 20120221
  Receipt Date: 20120209
  Transmission Date: 20120608
  Serious: Yes (Hospitalization, Other)
  Sender: FDA-Public Use
  Company Number: PHFR2012GB001103

PATIENT
  Age: 69 Year
  Sex: Male

DRUGS (3)
  1. TEGRETOL [Suspect]
     Dosage: 100 MG, BID
     Route: 048
  2. TEGRETOL [Suspect]
     Dosage: 200 MG, BID
     Route: 048
  3. TEGRETOL [Suspect]
     Dosage: 800 MG, DAILY
     Route: 048

REACTIONS (7)
  - DRUG DISPENSING ERROR [None]
  - SLEEP DISORDER [None]
  - CHEST PAIN [None]
  - HEADACHE [None]
  - INCORRECT DOSE ADMINISTERED [None]
  - SCREAMING [None]
  - NIGHT SWEATS [None]
